FAERS Safety Report 9975789 (Version 2)
Quarter: 2014Q1

REPORT INFORMATION
  Report Type: Report from Study
  Country: JP (occurrence: JP)
  Receive Date: 20140306
  Receipt Date: 20140318
  Transmission Date: 20141002
  Serious: Yes (Death)
  Sender: FDA-Public Use
  Company Number: JP-UCBSA-113591

PATIENT
  Age: 76 Year
  Sex: Female
  Weight: 49 kg

DRUGS (6)
  1. E KEPPRA [Suspect]
     Indication: PARTIAL SEIZURES WITH SECONDARY GENERALISATION
     Route: 048
     Dates: start: 20131025, end: 20131217
  2. ADALAT L [Concomitant]
     Dosage: DAILY DOSE: 20 MG
     Route: 048
     Dates: end: 20131217
  3. MICARDIS [Concomitant]
     Dosage: DAILY DOSE: 40 MG
     Route: 048
     Dates: end: 20131217
  4. GASTER D [Concomitant]
     Dosage: DAILY DOSE: 20 MG
     Route: 048
     Dates: end: 20131217
  5. RINDERON [Concomitant]
     Dosage: DAILY DOSE: 3 MG
     Route: 048
     Dates: end: 20131217
  6. DEPAKENE-R [Concomitant]
     Dosage: DAILY DOSE: 800MG
     Route: 048
     Dates: end: 20131217

REACTIONS (1)
  - Metastases to stomach [Fatal]
